FAERS Safety Report 9027828 (Version 1)
Quarter: 2013Q1

REPORT INFORMATION
  Report Type: Spontaneous
  Country: US (occurrence: None)
  Receive Date: 20130115
  Receipt Date: 20130115
  Transmission Date: 20140127
  Serious: Yes (Other)
  Sender: FDA-Public Use
  Company Number: None

PATIENT
  Age: 74 Year
  Sex: Female
  Weight: 54.5 kg

DRUGS (1)
  1. ATORVASTATIN (GENERIC LIPITOR) [Suspect]
     Indication: BLOOD CHOLESTEROL INCREASED
     Dosage: LIPITOR (GENERIC) 10MG. 1/2 THREE TIMES/WEEK ORAL
     Route: 048
     Dates: start: 20121020, end: 20121215

REACTIONS (3)
  - Middle insomnia [None]
  - Muscle spasms [None]
  - Hypoaesthesia [None]
